FAERS Safety Report 25844544 (Version 1)
Quarter: 2025Q3

REPORT INFORMATION
  Report Type: Spontaneous
  Country: US (occurrence: US)
  Receive Date: 20250925
  Receipt Date: 20250925
  Transmission Date: 20251021
  Serious: No
  Sender: TEVA
  Company Number: US-TEVA-VS-3372322

PATIENT
  Age: 11 Year
  Sex: Female

DRUGS (1)
  1. SUCRALFATE [Suspect]
     Active Substance: SUCRALFATE
     Indication: Product used for unknown indication
     Route: 048

REACTIONS (2)
  - Food allergy [Not Recovered/Not Resolved]
  - Product use issue [Unknown]
